FAERS Safety Report 8283315-9 (Version None)
Quarter: 2012Q2

REPORT INFORMATION
  Report Type: 
  Country: None (occurrence: None)
  Receive Date: 20120413
  Receipt Date: 20120412
  Transmission Date: 20120825
  Serious: Yes (Hospitalization, Other)
  Sender: FDA-Public Use
  Company Number: CA-ABBOTT-12P-028-0909981-00

PATIENT
  Sex: Male
  Weight: 77.18 kg

DRUGS (3)
  1. METHOTREXATE [Concomitant]
     Indication: PSORIATIC ARTHROPATHY
  2. HUMIRA [Suspect]
     Indication: PSORIATIC ARTHROPATHY
     Route: 058
     Dates: start: 20110518, end: 20111031
  3. HUMIRA [Suspect]

REACTIONS (4)
  - MALAISE [None]
  - PERIRECTAL ABSCESS [None]
  - BACTERAEMIA [None]
  - SEPSIS [None]
